FAERS Safety Report 20492096 (Version 1)
Quarter: 2022Q1

REPORT INFORMATION
  Report Type: Report from Study
  Country: US (occurrence: US)
  Receive Date: 20220218
  Receipt Date: 20220218
  Transmission Date: 20220423
  Serious: Yes (Other)
  Sender: FDA-Public Use
  Company Number: US-TEVA-2018-US-847184

PATIENT
  Age: 54 Year
  Sex: Male

DRUGS (1)
  1. AUSTEDO [Suspect]
     Active Substance: DEUTETRABENAZINE
     Indication: Parkinson^s disease
     Dosage: 48 MILLIGRAM DAILY;
     Route: 065
     Dates: start: 20171124

REACTIONS (3)
  - Hallucination, auditory [Recovered/Resolved]
  - Product use in unapproved indication [Unknown]
  - Condition aggravated [Unknown]

NARRATIVE: CASE EVENT DATE: 20171124
